FAERS Safety Report 9285990 (Version 2)
Quarter: 2013Q2

REPORT INFORMATION
  Report Type: Spontaneous
  Country: US (occurrence: US)
  Receive Date: 20130513
  Receipt Date: 20130521
  Transmission Date: 20140414
  Serious: Yes (Other)
  Sender: FDA-Public Use
  Company Number: US-TEVA-403548USA

PATIENT
  Age: 52 Year
  Sex: Female
  Weight: 40.86 kg

DRUGS (4)
  1. HYDROCODONE W/IBUPROFEN [Suspect]
     Indication: BACK PAIN
     Dosage: 7.5/200 MG
     Dates: start: 2007
  2. OXYCODONE [Suspect]
     Indication: HYPOKINESIA
     Dosage: 10 MILLIGRAM DAILY;
     Dates: start: 2007, end: 2007
  3. VICODIN [Suspect]
     Indication: HYPOKINESIA
     Dosage: 4-5 TABLETS AS NEEDED
     Dates: start: 2007
  4. LYRICA [Suspect]

REACTIONS (4)
  - Surgery [Unknown]
  - Fall [Unknown]
  - Drug ineffective [Unknown]
  - Pain [Unknown]
